FAERS Safety Report 8339097-5 (Version None)
Quarter: 2012Q2

REPORT INFORMATION
  Report Type: 
  Country: None (occurrence: None)
  Receive Date: 20120507
  Receipt Date: 20120501
  Transmission Date: 20120825
  Serious: Yes (Other)
  Sender: FDA-Public Use
  Company Number: US-PFIZER INC-2012108652

PATIENT
  Sex: Male

DRUGS (3)
  1. TORADOL [Suspect]
     Dosage: UNK
  2. TRAMADOL HYDROCHLORIDE [Suspect]
     Dosage: UNK
  3. GABAPENTIN [Suspect]
     Dosage: UNK

REACTIONS (1)
  - CEREBROVASCULAR ACCIDENT [None]
